FAERS Safety Report 20987705 (Version 2)
Quarter: 2022Q4

REPORT INFORMATION
  Report Type: Spontaneous
  Country: JP (occurrence: JP)
  Receive Date: 20220621
  Receipt Date: 20221203
  Transmission Date: 20230112
  Serious: Yes (Other)
  Sender: FDA-Public Use
  Company Number: JP-AMGEN-JPNSP2022102100

PATIENT

DRUGS (1)
  1. APREMILAST [Suspect]
     Active Substance: APREMILAST
     Indication: Behcet^s syndrome
     Dosage: UNK
     Route: 048

REACTIONS (10)
  - Cervix carcinoma [Unknown]
  - Behcet^s syndrome [Unknown]
  - Deafness neurosensory [Recovering/Resolving]
  - Therapy non-responder [Unknown]
  - Oral herpes [Unknown]
  - Diarrhoea [Unknown]
  - Nausea [Unknown]
  - Abdominal pain [Unknown]
  - Tinnitus [Recovering/Resolving]
  - Headache [Unknown]
